FAERS Safety Report 13351187 (Version 1)
Quarter: 2017Q1

REPORT INFORMATION
  Report Type: Spontaneous
  Country: JP (occurrence: JP)
  Receive Date: 20170320
  Receipt Date: 20170320
  Transmission Date: 20170429
  Serious: Yes (Hospitalization)
  Sender: FDA-Public Use
  Company Number: JP-SA-2017SA043834

PATIENT

DRUGS (2)
  1. JEVTANA [Suspect]
     Active Substance: CABAZITAXEL
     Dosage: FREQUENCY: EVERY 4 WEEK
     Route: 042
  2. RANMARK [Concomitant]
     Active Substance: DENOSUMAB
     Route: 065

REACTIONS (1)
  - Gingivitis [Unknown]
